FAERS Safety Report 24226757 (Version 1)
Quarter: 2024Q3

REPORT INFORMATION
  Report Type: Spontaneous
  Country: US (occurrence: US)
  Receive Date: 20240820
  Receipt Date: 20240820
  Transmission Date: 20241016
  Serious: Yes (Hospitalization)
  Sender: MYLAN
  Company Number: US-MYLANLABS-2024M1074951

PATIENT
  Age: 75 Year
  Sex: Male

DRUGS (5)
  1. TACROLIMUS [Suspect]
     Active Substance: TACROLIMUS
     Indication: Prophylaxis against transplant rejection
     Dosage: UNK, BID, PATIENT WAS PRESCRIBED TACROLIMUS TO TAKE 0.5MG DAILY, BUT TOOK 1.5MG IN MORNING?..
     Route: 065
  2. TACROLIMUS [Suspect]
     Active Substance: TACROLIMUS
     Dosage: 0.5 MILLIGRAM, QD
     Route: 065
  3. TACROLIMUS [Suspect]
     Active Substance: TACROLIMUS
     Dosage: UNK, INITIALLY DOSE REDUCED; DISCONTINUED AND THEN RESTARTED
     Route: 065
  4. MYCOPHENOLATE MOFETIL [Concomitant]
     Active Substance: MYCOPHENOLATE MOFETIL
     Indication: Prophylaxis against transplant rejection
     Dosage: UNK
     Route: 065
  5. PREDNISONE [Concomitant]
     Active Substance: PREDNISONE
     Indication: Prophylaxis against transplant rejection
     Dosage: UNK
     Route: 065

REACTIONS (7)
  - Intentional product misuse [Recovering/Resolving]
  - Pericardial effusion [Recovering/Resolving]
  - Pulmonary hypertension [Recovering/Resolving]
  - Oedema peripheral [Recovering/Resolving]
  - Generalised oedema [Recovering/Resolving]
  - Ascites [Recovering/Resolving]
  - Blood creatinine increased [Recovering/Resolving]
